FAERS Safety Report 4769048-1 (Version None)
Quarter: 2005Q3

REPORT INFORMATION
  Report Type: 
  Country: None (occurrence: None)
  Receive Date: 20050915
  Receipt Date: 20050905
  Transmission Date: 20060218
  Serious: Yes (Hospitalization)
  Sender: FDA-Public Use
  Company Number: FI-SOLVAY-00305002826

PATIENT
  Age: 70 Year
  Sex: Male
  Weight: 56 kg

DRUGS (5)
  1. WARAN [Concomitant]
     Indication: CEREBROVASCULAR ACCIDENT
     Dosage: DAILY DOSE: 2.5 MILLIGRAM(S)
     Route: 048
  2. CREON [Suspect]
     Indication: ILL-DEFINED DISORDER
     Dosage: DAILY DOSE:  UNKNOWN
     Route: 048
     Dates: start: 20050805, end: 20050801
  3. FOLACIN [Concomitant]
     Indication: HYPOVITAMINOSIS
     Dosage: DAILY DOSE: 5 MILLIGRAM(S)
     Route: 048
  4. SIMVASTIN [Concomitant]
     Indication: HYPERTENSION
     Dosage: DAILY DOSE:  UNKNOWN
     Route: 048
  5. OMEPRAZOLE [Concomitant]
     Indication: PROPHYLAXIS
     Dosage: DAILY DOSE: 20 MILLIGRAM(S)
     Route: 048

REACTIONS (2)
  - ILEUS [None]
  - SURGICAL PROCEDURE REPEATED [None]
